FAERS Safety Report 4510217-3 (Version None)
Quarter: 2004Q4

REPORT INFORMATION
  Report Type: 
  Country: None (occurrence: None)
  Receive Date: 20041119
  Receipt Date: 20041029
  Transmission Date: 20050328
  Serious: Yes (Disabling)
  Sender: FDA-Public Use
  Company Number: GBS041115849

PATIENT
  Age: 49 Year
  Sex: Male

DRUGS (1)
  1. CIALIS [Suspect]
     Indication: ERECTILE DYSFUNCTION
     Dosage: 20 MG AS NEEDED
     Dates: start: 20040401, end: 20040701

REACTIONS (2)
  - ANTI-THYROID ANTIBODY POSITIVE [None]
  - HYPERTHYROIDISM [None]
